FAERS Safety Report 10484614 (Version 1)
Quarter: 2014Q3

REPORT INFORMATION
  Report Type: Report from Study
  Country: US (occurrence: US)
  Receive Date: 20140930
  Receipt Date: 20140930
  Transmission Date: 20150326
  Serious: No
  Sender: FDA-Public Use
  Company Number: US-ALEXION-A201002323

PATIENT
  Sex: Female

DRUGS (2)
  1. PREDNISONE. [Concomitant]
     Active Substance: PREDNISONE
     Dosage: 5 MG, UNK
     Route: 048
  2. SOLIRIS [Suspect]
     Active Substance: ECULIZUMAB
     Indication: PAROXYSMAL NOCTURNAL HAEMOGLOBINURIA
     Dosage: UNK
     Route: 042

REACTIONS (10)
  - Haemolysis [Unknown]
  - Throat irritation [Unknown]
  - Quality of life decreased [Unknown]
  - Mononucleosis heterophile test positive [Unknown]
  - Fatigue [Unknown]
  - Arthralgia [Unknown]
  - Nasopharyngitis [Recovered/Resolved]
  - Lymph node pain [Unknown]
  - Haemoglobin decreased [Unknown]
  - Haemoglobinuria [Unknown]
